FAERS Safety Report 9324311 (Version 2)
Quarter: 2013Q3

REPORT INFORMATION
  Report Type: Spontaneous
  Country: US (occurrence: US)
  Receive Date: 20130603
  Receipt Date: 20130718
  Transmission Date: 20140515
  Serious: Yes (Disabling, Other)
  Sender: FDA-Public Use
  Company Number: US-PFIZER INC-2013163631

PATIENT
  Age: 62 Year
  Sex: Male
  Weight: 86.17 kg

DRUGS (1)
  1. CHANTIX [Suspect]
     Indication: SMOKING CESSATION THERAPY
     Dosage: UNK
     Route: 048
     Dates: start: 20120101

REACTIONS (6)
  - Spondylitis [Unknown]
  - Arthritis [Unknown]
  - Intervertebral disc space narrowing [Unknown]
  - Intervertebral disc displacement [Unknown]
  - Musculoskeletal disorder [Unknown]
  - Body height decreased [Unknown]
